FAERS Safety Report 20426969 (Version 1)
Quarter: 2022Q1

REPORT INFORMATION
  Report Type: Spontaneous
  Country: JP (occurrence: JP)
  Receive Date: 20220204
  Receipt Date: 20220204
  Transmission Date: 20220424
  Serious: No
  Sender: FDA-Public Use
  Company Number: JP-TAKEDA-2021TJP116387

PATIENT
  Age: 86 Year
  Sex: Male

DRUGS (1)
  1. CABOMETYX [Suspect]
     Active Substance: CABOZANTINIB S-MALATE
     Indication: Hepatocellular carcinoma
     Dosage: 60 MILLIGRAM
     Route: 048
     Dates: start: 20210801, end: 20211101

REACTIONS (1)
  - Malaise [Unknown]
